FAERS Safety Report 6150577 (Version 4)
Quarter: 2013Q1

REPORT INFORMATION
  Report Type: Report from Study
  Country: ZA (occurrence: ZA)
  Receive Date: 20061020
  Receipt Date: 20130314
  Transmission Date: 20140127
  Serious: Yes (Hospitalization, Other)
  Sender: FDA-Public Use
  Company Number: ZA-BRISTOL-MYERS SQUIBB COMPANY-13291570

PATIENT
  Age: 49 Year
  Sex: Male

DRUGS (6)
  1. DASATINIB [Suspect]
     Indication: LEUKAEMIA
     Route: 048
     Dates: start: 20051010
  2. FLAMAZINE [Concomitant]
  3. FOLIC ACID [Concomitant]
     Route: 048
     Dates: start: 20051114
  4. ANUSOL [Concomitant]
     Dates: start: 20051205
  5. CEPHALEXIN [Concomitant]
     Route: 048
     Dates: start: 20051205, end: 20051208
  6. PANADO [Concomitant]
     Dates: start: 20060224

REACTIONS (9)
  - Diarrhoea [Recovered/Resolved]
  - Haemoglobin decreased [Recovered/Resolved]
  - Haemorrhoidal haemorrhage [Recovered/Resolved]
  - Hypotension [Recovered/Resolved]
  - Infection [Not Recovered/Not Resolved]
  - Back pain [Not Recovered/Not Resolved]
  - Leukaemic infiltration brain [Not Recovered/Not Resolved]
  - Cellulitis [Recovered/Resolved]
  - Haemorrhoids [Recovered/Resolved]
